FAERS Safety Report 11248970 (Version 1)
Quarter: 2015Q3

REPORT INFORMATION
  Report Type: Spontaneous
  Country: US (occurrence: US)
  Receive Date: 20150708
  Receipt Date: 20150708
  Transmission Date: 20151125
  Serious: Yes (Other)
  Sender: FDA-Public Use
  Company Number: US-ELI_LILLY_AND_COMPANY-US200704003265

PATIENT
  Age: 59 Year
  Sex: Female
  Weight: 55.15 kg

DRUGS (7)
  1. POTASSIUM CHLORIDE. [Concomitant]
     Active Substance: POTASSIUM CHLORIDE
     Dosage: 30 MEQ, UNK
     Dates: start: 20070625
  2. ALIMTA [Suspect]
     Active Substance: PEMETREXED DISODIUM
     Indication: NON-SMALL CELL LUNG CANCER
     Dosage: 800 MG, OTHER
     Dates: start: 20070226
  3. VITAMIN B12 [Concomitant]
     Active Substance: CYANOCOBALAMIN
     Route: 030
     Dates: start: 20070222
  4. ALIMTA [Suspect]
     Active Substance: PEMETREXED DISODIUM
     Dosage: 600 MG/M2, OTHER
  5. ALIMTA [Suspect]
     Active Substance: PEMETREXED DISODIUM
     Dosage: 500 MG/M2, UNK
  6. FOLIC ACID. [Concomitant]
     Active Substance: FOLIC ACID
  7. DEXAMETHASONE. [Concomitant]
     Active Substance: DEXAMETHASONE

REACTIONS (3)
  - Pancytopenia [Not Recovered/Not Resolved]
  - Blood urea decreased [Not Recovered/Not Resolved]
  - Spinal cord compression [Unknown]

NARRATIVE: CASE EVENT DATE: 20070301
